FAERS Safety Report 8548654-2 (Version None)
Quarter: 2012Q3

REPORT INFORMATION
  Report Type: 
  Country: None (occurrence: None)
  Receive Date: 20120717
  Receipt Date: 20120703
  Transmission Date: 20120928
  Serious: Yes (Hospitalization)
  Sender: FDA-Public Use
  Company Number: FK201201864

PATIENT
  Age: 50 Year
  Sex: Female

DRUGS (4)
  1. CYTARABINE [Suspect]
     Indication: ACUTE MYELOID LEUKAEMIA
     Dosage: 100 MG/M2, ON DAYS 1-7
  2. IDARUBICIN HYDROCHLORIDE [Suspect]
     Indication: ACUTE MYELOID LEUKAEMIA
     Dosage: 12 MG/M2, ON DAYS 1-3
  3. MITOXANTRONE HYDROCHLORIDE [Suspect]
     Indication: ACUTE MYELOID LEUKAEMIA
     Dosage: 10 MG/M2, ON DAYS 1-5
  4. ETOPOSIDE [Suspect]
     Indication: ACUTE MYELOID LEUKAEMIA
     Dosage: 100 MG/M2, ON DAYS 1-5

REACTIONS (12)
  - PANCYTOPENIA [None]
  - HAEMOPTYSIS [None]
  - KLEBSIELLA SEPSIS [None]
  - ALVEOLITIS ALLERGIC [None]
  - THROMBOCYTOPENIA [None]
  - PANNICULITIS [None]
  - COLITIS [None]
  - PETECHIAE [None]
  - PYREXIA [None]
  - LARYNGOSPASM [None]
  - FEBRILE NEUTROPENIA [None]
  - REFRACTORINESS TO PLATELET TRANSFUSION [None]
